FAERS Safety Report 9160798 (Version 2)
Quarter: 2013Q2

REPORT INFORMATION
  Report Type: Spontaneous
  Country: AU (occurrence: AU)
  Receive Date: 20130313
  Receipt Date: 20130404
  Transmission Date: 20140414
  Serious: Yes (Life-Threatening, Hospitalization)
  Sender: FDA-Public Use
  Company Number: AU-B.I. PHARMACEUTICALS,INC./RIDGEFIELD-2013-AU-00274AU

PATIENT
  Age: 79 Year
  Sex: Male
  Weight: 83 kg

DRUGS (4)
  1. PRADAXA [Suspect]
     Indication: ATRIAL FIBRILLATION
     Dosage: 220 MG
     Dates: start: 20110729
  2. COVERSYL [Concomitant]
     Dosage: 2.5 MG
     Dates: start: 19990928
  3. CRESTOR [Concomitant]
     Dosage: 10 MG
     Dates: start: 20070328
  4. DIGOXIN [Concomitant]
     Dosage: 62.5 MCG
     Dates: start: 20100409

REACTIONS (4)
  - Peripheral artery thrombosis [Recovered/Resolved]
  - Groin pain [Unknown]
  - Pain in extremity [Unknown]
  - Paraesthesia [Unknown]
